FAERS Safety Report 6698436-1 (Version None)
Quarter: 2010Q2

REPORT INFORMATION
  Report Type: 
  Country: None (occurrence: None)
  Receive Date: 20100427
  Receipt Date: 20100413
  Transmission Date: 20101027
  Serious: Yes (Death, Hospitalization)
  Sender: FDA-Public Use
  Company Number: US-ROCHE-698229

PATIENT
  Age: 61 Year
  Sex: Male

DRUGS (5)
  1. TRASTUZUMAB [Suspect]
     Indication: BLADDER CANCER
     Dosage: LOADING DOSE, FORM: POWDER AND SOLVENT FOR SOLUTION FOR INFUSION
     Route: 041
  2. TRASTUZUMAB [Suspect]
     Dosage: FORM: POWDER AND SOLVENT FOR SOLUTION FOR INFUSION, RECEIVED ON DAY 1, 8 AND 15 EVERY 21 DAYS
     Route: 041
  3. CARBOPLATIN [Suspect]
     Indication: BLADDER CANCER
     Dosage: FORM: POWDER AND SOLVENT FOR SOLUTION FOR INFUSION, FREQUENCY: ONCE, AUC 5 DAY1
     Route: 041
  4. PACLITAXEL [Suspect]
     Indication: BLADDER CANCER
     Dosage: FORM: POWDER AND SOLVENT FOR SOLUTION FOR INFUSION, FREQUENCY; ONCE, DAY 1
     Route: 041
  5. GEMCITABINE HCL [Suspect]
     Indication: BLADDER CANCER
     Dosage: FORM: POWDER AND SOLVENT FOR SOLUTION FOR INFUSION, FREQUENCY: ONCE, DAYS 1, 8
     Route: 041

REACTIONS (4)
  - DISEASE PROGRESSION [None]
  - DRUG INEFFECTIVE [None]
  - METASTASES TO CENTRAL NERVOUS SYSTEM [None]
  - METASTASES TO MENINGES [None]
